FAERS Safety Report 9996682 (Version 1)
Quarter: 2014Q1

REPORT INFORMATION
  Report Type: Spontaneous
  Country: JP (occurrence: JP)
  Receive Date: 20140311
  Receipt Date: 20140311
  Transmission Date: 20141002
  Serious: Yes (Other)
  Sender: FDA-Public Use
  Company Number: JP-PFIZER INC-2014067307

PATIENT
  Sex: Female

DRUGS (2)
  1. GENOTROPIN [Suspect]
     Indication: GROWTH HORMONE DEFICIENCY
     Dosage: 8.8 MG, WEEKLY, 6 INJECTIONS
     Dates: start: 20100401
  2. GENOTROPIN [Suspect]
     Dosage: 9.6 MG, WEEKLY, 6 INJECTIONS
     Dates: start: 20110321

REACTIONS (1)
  - Autoimmune thyroiditis [Unknown]
